FAERS Safety Report 7466261-X (Version None)
Quarter: 2011Q2

REPORT INFORMATION
  Report Type: 
  Country: None (occurrence: None)
  Receive Date: 20110509
  Receipt Date: 20100707
  Transmission Date: 20111010
  Serious: No
  Sender: FDA-Public Use
  Company Number: US-ALEXION-A201000799

PATIENT
  Sex: Female

DRUGS (18)
  1. LISINOPRIL [Concomitant]
     Dosage: 5 MG, QD
     Route: 048
  2. PLAVIX [Concomitant]
     Dosage: 75 MG, QD
     Route: 048
  3. SOLIRIS [Suspect]
     Dosage: 600 MG, QW
     Route: 042
     Dates: start: 20091012, end: 20091110
  4. SOLIRIS [Suspect]
     Dosage: 900 MG, Q3W
     Route: 042
     Dates: start: 20100504
  5. CRESTOR [Concomitant]
     Dosage: 40 MG, QD
     Route: 048
  6. SOLIRIS [Suspect]
     Dosage: 900 MG, Q2W
     Route: 042
     Dates: start: 20091110, end: 20100105
  7. GLIPIZIDE [Concomitant]
     Dosage: 5 MG, QD
     Route: 048
  8. EXJADE [Concomitant]
     Dosage: 1000 MG, QD
  9. LASIX [Concomitant]
     Dosage: 40 MG, QD
     Route: 048
  10. SOLIRIS [Suspect]
     Dosage: 600 MG, QW
     Route: 042
     Dates: start: 20100318, end: 20100420
  11. NITROGLYCERIN [Concomitant]
     Indication: CHEST PAIN
     Dosage: 0.4 MG, PRN
     Route: 060
  12. SOLIRIS [Suspect]
     Dosage: 900 MG, Q2W
     Route: 042
     Dates: start: 20081230, end: 20090601
  13. SOLIRIS [Suspect]
     Dosage: 900 MG, Q2W
     Route: 042
     Dates: start: 20100420, end: 20100504
  14. VITAMIN A [Concomitant]
     Dosage: 50000 UT, QW
     Route: 048
  15. SOLIRIS [Suspect]
     Indication: PAROXYSMAL NOCTURNAL HAEMOGLOBINURIA
     Dosage: 600 MG, QW
     Route: 042
     Dates: start: 20081201, end: 20081230
  16. ALPRAZOLAM [Concomitant]
     Indication: ANXIETY
     Dosage: 0.5 MG, PRN
     Route: 048
  17. METOPROLOL TARTRATE [Concomitant]
     Dosage: 25 MG, QD
     Route: 048
  18. ASPIRIN [Concomitant]
     Dosage: 81 MG, QD
     Route: 048

REACTIONS (2)
  - HAEMOGLOBIN DECREASED [None]
  - FATIGUE [None]
